FAERS Safety Report 9288389 (Version 2)
Quarter: 2014Q2

REPORT INFORMATION
  Report Type: Spontaneous
  Country: US (occurrence: US)
  Receive Date: 20130514
  Receipt Date: 20140522
  Transmission Date: 20141212
  Serious: Yes (Congenital Anomaly, Other)
  Sender: FDA-Public Use
  Company Number: US-PFIZER INC-2013145324

PATIENT
  Sex: Male

DRUGS (5)
  1. ZOLOFT [Suspect]
     Dosage: UNK
     Route: 064
     Dates: start: 20060612, end: 200610
  2. SERTRALINE HCL [Suspect]
     Dosage: UNK
     Route: 064
     Dates: start: 20060612, end: 200610
  3. IRON [Concomitant]
     Dosage: UNK
     Route: 064
  4. ADVIL [Concomitant]
     Dosage: UNK, OCCASIONALLY
     Route: 064
  5. TYLENOL [Concomitant]
     Dosage: UNK, OCCASIONALLY
     Route: 064

REACTIONS (3)
  - Maternal exposure during pregnancy [Unknown]
  - Talipes [Unknown]
  - Congenital anomaly [Unknown]
